FAERS Safety Report 23410125 (Version 1)
Quarter: 2024Q1

REPORT INFORMATION
  Report Type: Spontaneous
  Country: US (occurrence: US)
  Receive Date: 20240117
  Receipt Date: 20240117
  Transmission Date: 20240410
  Serious: No
  Sender: FDA-Public Use
  Company Number: US-TEVA-VS-3144227

PATIENT
  Age: 50 Year

DRUGS (21)
  1. COPAXONE [Suspect]
     Active Substance: GLATIRAMER ACETATE
     Indication: Product used for unknown indication
     Route: 065
  2. DULOXETINE [Concomitant]
     Active Substance: DULOXETINE
  3. SUMATRIPTAN SUCCINATE [Concomitant]
     Active Substance: SUMATRIPTAN SUCCINATE
  4. BACLOFEN [Concomitant]
     Active Substance: BACLOFEN
  5. ZOFRAN [Concomitant]
     Active Substance: ONDANSETRON HYDROCHLORIDE
  6. MONTELUKAST [Concomitant]
     Active Substance: MONTELUKAST SODIUM
  7. LEVOTHYROXINE [Concomitant]
     Active Substance: LEVOTHYROXINE\LEVOTHYROXINE SODIUM
  8. GLIPIZIDE [Concomitant]
     Active Substance: GLIPIZIDE
  9. GABAPENTIN [Concomitant]
     Active Substance: GABAPENTIN
  10. DEPAKOTE [Concomitant]
     Active Substance: DIVALPROEX SODIUM
  11. VALTREX [Concomitant]
     Active Substance: VALACYCLOVIR HYDROCHLORIDE
  12. METOPROLOL TARTRATE [Concomitant]
     Active Substance: METOPROLOL TARTRATE
  13. NOVOLIN NOS [Concomitant]
     Active Substance: INSULIN HUMAN
  14. BUSPIRONE [Concomitant]
     Active Substance: BUSPIRONE HYDROCHLORIDE
  15. HYOSCYAMINE SULFATE [Concomitant]
     Active Substance: HYOSCYAMINE SULFATE
  16. DALFAMPRIDINE [Concomitant]
     Active Substance: DALFAMPRIDINE
  17. MAXALT-MLT [Concomitant]
     Active Substance: RIZATRIPTAN BENZOATE
  18. CLONAZEPAM [Concomitant]
     Active Substance: CLONAZEPAM
  19. METFORMIN [Concomitant]
     Active Substance: METFORMIN HYDROCHLORIDE
  20. LISINOPRIL [Concomitant]
     Active Substance: LISINOPRIL
  21. INVOKANA [Concomitant]
     Active Substance: CANAGLIFLOZIN

REACTIONS (3)
  - Dysphemia [Unknown]
  - Balance disorder [Unknown]
  - Disturbance in attention [Unknown]
